FAERS Safety Report 21554900 (Version 1)
Quarter: 2022Q4

REPORT INFORMATION
  Report Type: Spontaneous
  Country: TR (occurrence: TR)
  Receive Date: 20221104
  Receipt Date: 20221104
  Transmission Date: 20230113
  Serious: Yes (Hospitalization, Other)
  Sender: FDA-Public Use
  Company Number: TR-PFIZER INC-PV202200093888

PATIENT
  Age: 1 Year
  Sex: Male

DRUGS (3)
  1. LORLATINIB [Suspect]
     Active Substance: LORLATINIB
     Indication: Neuroblastoma
     Dosage: 45 MG/M2
  2. IRINOTECAN [Suspect]
     Active Substance: IRINOTECAN
     Indication: Neuroblastoma
     Dosage: 50 MG/M2
  3. TEMOZOLOMIDE [Suspect]
     Active Substance: TEMOZOLOMIDE
     Indication: Neuroblastoma
     Dosage: 100 MG/M2

REACTIONS (1)
  - Hypercholesterolaemia [Unknown]
